FAERS Safety Report 9461946 (Version 1)
Quarter: 2013Q3

REPORT INFORMATION
  Report Type: Spontaneous
  Country: US (occurrence: US)
  Receive Date: 20130816
  Receipt Date: 20130816
  Transmission Date: 20140515
  Serious: No
  Sender: FDA-Public Use
  Company Number: US-BRISTOL-MYERS SQUIBB COMPANY-16912990

PATIENT
  Age: 61 Year
  Sex: Male

DRUGS (1)
  1. GLUCOVANCE [Suspect]
     Indication: BLOOD GLUCOSE INCREASED
     Dosage: 1 DF=5MG/500 MG

REACTIONS (1)
  - Drug ineffective [Unknown]
